FAERS Safety Report 22626208 (Version 1)
Quarter: 2023Q2

REPORT INFORMATION
  Report Type: Spontaneous
  Country: US (occurrence: None)
  Receive Date: 20230620
  Receipt Date: 20230620
  Transmission Date: 20230721
  Serious: Yes (unspecified)
  Sender: FDA-Public Use
  Company Number: None

PATIENT
  Age: 43 Year
  Sex: Male
  Weight: 87.75 kg

DRUGS (1)
  1. XYZAL [Suspect]
     Active Substance: LEVOCETIRIZINE DIHYDROCHLORIDE
     Indication: Hypersensitivity

REACTIONS (4)
  - Tooth fracture [None]
  - Bruxism [None]
  - Bruxism [None]
  - Tongue ulceration [None]

NARRATIVE: CASE EVENT DATE: 20230601
